FAERS Safety Report 6382713-8 (Version None)
Quarter: 2009Q3

REPORT INFORMATION
  Report Type: 
  Country: None (occurrence: None)
  Receive Date: 20090930
  Receipt Date: 20090918
  Transmission Date: 20100115
  Serious: Yes (Hospitalization)
  Sender: FDA-Public Use
  Company Number: AU-BRISTOL-MYERS SQUIBB COMPANY-14784854

PATIENT
  Age: 69 Year
  Sex: Male
  Weight: 88 kg

DRUGS (3)
  1. BRIVANIB ALANINATE [Suspect]
     Indication: COLORECTAL CANCER METASTATIC
     Dosage: INTERRUPTED ON 23SEP09;NO.OF WEEKS ON TREATMENT:3
     Route: 048
     Dates: start: 20090904, end: 20090923
  2. CETUXIMAB [Suspect]
     Indication: COLORECTAL CANCER METASTATIC
     Dosage: NO.OF WEEKS ON TREATMENT:3;
     Route: 042
     Dates: start: 20090904
  3. PLACEBO [Suspect]
     Indication: COLORECTAL CANCER METASTATIC
     Dosage: INTERRUPTED ON 23SEP2009
     Route: 048
     Dates: start: 20090904, end: 20090923

REACTIONS (1)
  - ATRIAL FIBRILLATION [None]
